FAERS Safety Report 5486876-8 (Version None)
Quarter: 2007Q4

REPORT INFORMATION
  Report Type: 
  Country: None (occurrence: None)
  Receive Date: 20071012
  Receipt Date: 20071012
  Transmission Date: 20080405
  Serious: Yes (Hospitalization)
  Sender: FDA-Public Use
  Company Number: None

PATIENT
  Sex: Female
  Weight: 81.54 kg

DRUGS (1)
  1. CISPLATIN [Suspect]
     Dosage: 198 MG
     Dates: end: 20070912

REACTIONS (6)
  - BLOOD ALBUMIN DECREASED [None]
  - CANDIDIASIS [None]
  - FEBRILE NEUTROPENIA [None]
  - HYPOTENSION [None]
  - MALNUTRITION [None]
  - PHARYNGOLARYNGEAL PAIN [None]
